FAERS Safety Report 6717418-4 (Version None)
Quarter: 2010Q2

REPORT INFORMATION
  Report Type: 
  Country: None (occurrence: None)
  Receive Date: 20100510
  Receipt Date: 20100428
  Transmission Date: 20101027
  Serious: Yes (Life-Threatening, Disabling, Other)
  Sender: FDA-Public Use
  Company Number: GB-SANOFI-AVENTIS-2010SA024971

PATIENT
  Age: 57 Year
  Sex: Female
  Weight: 80.3 kg

DRUGS (1)
  1. INSULIN GLARGINE [Suspect]
     Route: 058
     Dates: start: 20040101, end: 20090101

REACTIONS (2)
  - BREAST CANCER [None]
  - THYMOMA [None]
